FAERS Safety Report 12190770 (Version 1)
Quarter: 2016Q1

REPORT INFORMATION
  Report Type: Spontaneous
  Country: US (occurrence: US)
  Receive Date: 20160318
  Receipt Date: 20160318
  Transmission Date: 20160526
  Serious: Yes (Life-Threatening, Hospitalization, Other)
  Sender: FDA-Public Use
  Company Number: US-APOTEX-2016AP007232

PATIENT
  Age: 8 Month
  Sex: Female

DRUGS (1)
  1. FENTANYL. [Suspect]
     Active Substance: FENTANYL
     Indication: ACCIDENTAL EXPOSURE TO PRODUCT BY CHILD
     Dosage: 75 MCG/H (12.375MG FENTANYL)
     Route: 048

REACTIONS (2)
  - Accidental exposure to product by child [Recovered/Resolved]
  - Toxicity to various agents [Recovered/Resolved]
